FAERS Safety Report 12812433 (Version 2)
Quarter: 2016Q4

REPORT INFORMATION
  Report Type: Spontaneous
  Country: IT (occurrence: IT)
  Receive Date: 20161005
  Receipt Date: 20161010
  Transmission Date: 20170207
  Serious: Yes (Other)
  Sender: FDA-Public Use
  Company Number: IT-TEVA-697365ISR

PATIENT
  Age: 39 Year
  Sex: Female
  Weight: 64 kg

DRUGS (4)
  1. CEFAZOLINA TEVA - TEVA ITALIA S.R.L. [Suspect]
     Active Substance: CEFAZOLIN SODIUM
     Indication: ANTIBIOTIC PROPHYLAXIS
     Dosage: 2 GRAM DAILY;
     Route: 042
     Dates: start: 20160610, end: 20160610
  2. TRAMADOLO ANGENERICO - ANGENERICO S.P.A. [Suspect]
     Active Substance: TRAMADOL HYDROCHLORIDE
     Indication: POSTOPERATIVE ANALGESIA
     Dosage: 200 MILLIGRAM DAILY;
     Route: 042
     Dates: start: 20160610, end: 20160612
  3. PERFALGAN [Suspect]
     Active Substance: ACETAMINOPHEN
     Indication: POSTOPERATIVE ANALGESIA
     Dosage: 2 GRAM DAILY;
     Route: 042
     Dates: start: 20160611, end: 20160611
  4. ONDANSETRONE HIKMA - HIKMA FARMACEUTICA (PORTUGAL) S.A. [Suspect]
     Active Substance: ONDANSETRON HYDROCHLORIDE
     Indication: PROPHYLAXIS OF NAUSEA AND VOMITING
     Dosage: 4 MILLIGRAM DAILY;
     Route: 042
     Dates: start: 20160610, end: 20160612

REACTIONS (3)
  - Angioedema [Recovered/Resolved]
  - Rash [Recovered/Resolved]
  - Hypotension [Recovered/Resolved]

NARRATIVE: CASE EVENT DATE: 20160611
